FAERS Safety Report 22377147 (Version 2)
Quarter: 2024Q4

REPORT INFORMATION
  Report Type: Report from Study
  Country: GB (occurrence: GB)
  Receive Date: 20230529
  Receipt Date: 20241015
  Transmission Date: 20250115
  Serious: Yes (Hospitalization)
  Sender: ROCHE
  Company Number: GB-ROCHE-3356369

PATIENT
  Sex: Male

DRUGS (3)
  1. RISDIPLAM [Suspect]
     Active Substance: RISDIPLAM
     Indication: Product used for unknown indication
     Dosage: 0.75MG 1 PER WEEK
     Route: 065
  2. RISDIPLAM [Suspect]
     Active Substance: RISDIPLAM
     Route: 065
  3. RISDIPLAM [Suspect]
     Active Substance: RISDIPLAM
     Route: 065
     Dates: start: 202306

REACTIONS (2)
  - Spinal disorder [Unknown]
  - Off label use [Unknown]
